FAERS Safety Report 9772457 (Version 3)
Quarter: 2014Q1

REPORT INFORMATION
  Report Type: Report from Study
  Country: SE (occurrence: SE)
  Receive Date: 20131219
  Receipt Date: 20140217
  Transmission Date: 20141002
  Serious: Yes (Life-Threatening, Hospitalization)
  Sender: FDA-Public Use
  Company Number: SE-CELGENEUS-150-C4047-13122599

PATIENT
  Age: 61 Year
  Sex: Male
  Weight: 78.8 kg

DRUGS (20)
  1. CC-4047 [Suspect]
     Indication: PLASMA CELL MYELOMA
     Dosage: 4 MILLIGRAM
     Route: 048
     Dates: start: 20120405
  2. CC-4047 [Suspect]
     Dosage: 4 MILLIGRAM
     Route: 048
     Dates: start: 20131114, end: 20131213
  3. CC-4047 [Suspect]
     Dosage: 4 MILLIGRAM
     Route: 048
     Dates: start: 20140107
  4. DEXAMETHASONE [Suspect]
     Indication: PLASMA CELL MYELOMA
     Dosage: 40 MILLIGRAM
     Route: 065
     Dates: start: 20120405
  5. DEXAMETHASONE [Suspect]
     Dosage: 40 MILLIGRAM
     Route: 065
     Dates: start: 20131114, end: 20131213
  6. DEXAMETHASONE [Suspect]
     Dosage: 40 MILLIGRAM
     Route: 065
     Dates: start: 20140107
  7. MOVICOL [Concomitant]
     Indication: CONSTIPATION
     Route: 048
     Dates: start: 20120228
  8. ALLOPURINOL [Concomitant]
     Indication: PROPHYLAXIS
     Dosage: 300 MILLIGRAM
     Route: 048
     Dates: start: 20120228
  9. VALACICLOVIR [Concomitant]
     Indication: INFECTION PROPHYLAXIS
     Dosage: 1000 MILLIGRAM
     Route: 048
     Dates: start: 20120214
  10. OMEPRAZOLE [Concomitant]
     Indication: NAUSEA
     Route: 048
     Dates: start: 20120309
  11. BISPHOSPHONATES [Concomitant]
     Indication: PROPHYLAXIS
     Dosage: 30 MILLIGRAM
     Route: 041
     Dates: start: 20091229
  12. XYLOPROCT [Concomitant]
     Indication: HAEMORRHOIDS
     Route: 054
     Dates: start: 20120727
  13. NATRIUMPICOSULFAT [Concomitant]
     Indication: CONSTIPATION PROPHYLAXIS
     Route: 048
     Dates: start: 20120727
  14. DIMETIKON [Concomitant]
     Indication: FLATULENCE
     Route: 048
     Dates: start: 20120920
  15. LEUCOGEN [Concomitant]
     Indication: NEUTROPENIA
     Dosage: 60 MILLIGRAM
     Route: 048
     Dates: start: 201212
  16. ACETYLSALICYLIC ACID [Concomitant]
     Indication: THROMBOSIS PROPHYLAXIS
     Dosage: 75 MILLIGRAM
     Route: 048
     Dates: start: 20120404, end: 20130216
  17. ACETYLSALICYLIC ACID [Concomitant]
     Dosage: 75 MILLIGRAM
     Route: 048
     Dates: start: 20130305
  18. NOVALUZID [Concomitant]
     Indication: GASTRITIS
     Route: 048
     Dates: start: 20130724
  19. FLUCONAZOLE [Concomitant]
     Indication: ORAL FUNGAL INFECTION
     Dosage: 100 MILLIGRAM
     Route: 048
     Dates: start: 20130821
  20. DIKLOFENAK [Concomitant]
     Indication: MUSCULOSKELETAL PAIN
     Route: 062
     Dates: start: 20131016

REACTIONS (2)
  - Escherichia sepsis [Recovered/Resolved]
  - Pneumonia [Recovered/Resolved]
